FAERS Safety Report 11250414 (Version 1)
Quarter: 2015Q3

REPORT INFORMATION
  Report Type: Spontaneous
  Country: US (occurrence: US)
  Receive Date: 20150708
  Receipt Date: 20150708
  Transmission Date: 20151125
  Serious: No
  Sender: FDA-Public Use
  Company Number: US-ELI_LILLY_AND_COMPANY-US201007004066

PATIENT
  Age: 63 Year
  Sex: Female

DRUGS (3)
  1. SYMBYAX [Suspect]
     Active Substance: FLUOXETINE HYDROCHLORIDE\OLANZAPINE
     Indication: DEPRESSION
     Dosage: 1 D/F (6/25MG), DAILY (1/D)
     Dates: start: 20100416, end: 20100527
  2. SYMBYAX [Suspect]
     Active Substance: FLUOXETINE HYDROCHLORIDE\OLANZAPINE
     Dosage: 1 D/F (12/25 MG), DAILY (1/D)
     Dates: start: 20100527
  3. SYMBYAX [Suspect]
     Active Substance: FLUOXETINE HYDROCHLORIDE\OLANZAPINE
     Dosage: UNK, DAILY (1/D) (6/25 MG
     Dates: end: 20100730

REACTIONS (4)
  - Nervousness [Not Recovered/Not Resolved]
  - Tic [Recovering/Resolving]
  - Muscle spasms [Not Recovered/Not Resolved]
  - Drug ineffective [Unknown]
